FAERS Safety Report 21781092 (Version 1)
Quarter: 2022Q4

REPORT INFORMATION
  Report Type: Spontaneous
  Country: US (occurrence: US)
  Receive Date: 20221227
  Receipt Date: 20221227
  Transmission Date: 20230112
  Serious: No
  Sender: FDA-Public Use
  Company Number: US-VIIV HEALTHCARE LIMITED-US2022AMR191089

PATIENT

DRUGS (2)
  1. RILPIVIRINE [Suspect]
     Active Substance: RILPIVIRINE
     Indication: Product used for unknown indication
     Dosage: 3 ML, Z (EVERY 2 MONTHS) CABOTEGRAVIR- 600 MG AND RILPIVIRINE-900 MG
     Route: 065
  2. CABOTEGRAVIR [Suspect]
     Active Substance: CABOTEGRAVIR
     Indication: Product used for unknown indication
     Dosage: 3 ML, Z (EVERY 2 MONTHS) CABOTEGRAVIR- 600 MG AND RILPIVIRINE-900 MG
     Route: 065

REACTIONS (1)
  - Injection site nodule [Unknown]
